FAERS Safety Report 12201634 (Version 1)
Quarter: 2016Q1

REPORT INFORMATION
  Report Type: Spontaneous
  Country: US (occurrence: US)
  Receive Date: 20160322
  Receipt Date: 20160322
  Transmission Date: 20160526
  Serious: No
  Sender: FDA-Public Use
  Company Number: US-SA-2015SA133049

PATIENT
  Age: 36 Year
  Sex: Female

DRUGS (2)
  1. NASACORT ALLERGY 24HR [Suspect]
     Active Substance: TRIAMCINOLONE ACETONIDE
     Indication: EAR INFECTION
     Route: 065
     Dates: start: 20150809, end: 20150811
  2. NASACORT ALLERGY 24HR [Suspect]
     Active Substance: TRIAMCINOLONE ACETONIDE
     Indication: FLUID RETENTION
     Route: 065
     Dates: start: 20150809, end: 20150811

REACTIONS (1)
  - Migraine [Unknown]
